FAERS Safety Report 8907309 (Version 1)
Quarter: 2012Q4

REPORT INFORMATION
  Report Type: 
  Country: US (occurrence: US)
  Receive Date: 20121113
  Receipt Date: 20121113
  Transmission Date: 20130627
  Serious: No
  Sender: FDA-Public Use
  Company Number: US-AMGEN-USASP2012010485

PATIENT
  Age: 50 Year
  Sex: Female
  Weight: 90 kg

DRUGS (19)
  1. ENBREL [Suspect]
     Indication: PRODUCT USED FOR UNKNOWN INDICATION
     Dosage: 50 mg, qwk
     Route: 058
  2. PHENERGAN                          /00033001/ [Concomitant]
     Dosage: 25 mg, UNK
  3. PLAQUENIL                          /00072602/ [Concomitant]
     Dosage: 200 mg, UNK
  4. METHOTREXATE [Concomitant]
     Dosage: 2.5 mg, UNK
  5. PREDNISONE [Concomitant]
     Dosage: 1 mg, UNK
  6. TRAZODONE [Concomitant]
     Dosage: 50 mg, UNK
  7. MILK OF MAGNESIA [Concomitant]
  8. OMEPRAZOLE [Concomitant]
     Dosage: 20 mg, UNK
  9. BETHANECHOL [Concomitant]
     Dosage: 10 mg, UNK
  10. FOLIC ACID [Concomitant]
     Dosage: 1 mg, UNK
  11. HYDROCODONE BITARTRATE AND ACETAMINOPHEN [Concomitant]
     Dosage: 5 mg, UNK
  12. ATELVIA [Concomitant]
     Dosage: UNK
  13. MAGNESIUM CITRATE [Concomitant]
     Dosage: UNK
  14. BUTALBITAL AND ACETAMINOPHEN [Concomitant]
     Dosage: 50 mg, UNK
  15. MIRALAX                            /00754501/ [Concomitant]
     Dosage: UNK
  16. CALCIUM 500+D3 [Concomitant]
     Dosage: 500 mg, UNK
  17. FISH OIL [Concomitant]
     Dosage: UNK
  18. MULTIVITAMIN                       /00097801/ [Concomitant]
     Dosage: UNK
  19. ETODOLAC [Concomitant]
     Dosage: 200 mg, UNK

REACTIONS (1)
  - Fatigue [Unknown]
